FAERS Safety Report 8780302 (Version 1)
Quarter: 2012Q4

REPORT INFORMATION
  Report Type: Spontaneous
  Country: US (occurrence: None)
  Receive Date: 20120904
  Receipt Date: 20120904
  Transmission Date: 20130627
  Serious: Yes (Other)
  Sender: FDA-Public Use
  Company Number: None

PATIENT
  Age: 39 Year
  Sex: Female

DRUGS (1)
  1. HUMIRA PEN 40 MG [Suspect]
     Indication: RA
     Dates: start: 201207, end: 201208

REACTIONS (4)
  - Injection site erythema [None]
  - Injection site pain [None]
  - Injection site pain [None]
  - Hyperaesthesia [None]
